FAERS Safety Report 23306382 (Version 1)
Quarter: 2023Q4

REPORT INFORMATION
  Report Type: Report from Study
  Country: CA (occurrence: CA)
  Receive Date: 20231218
  Receipt Date: 20231218
  Transmission Date: 20240110
  Serious: Yes (Other)
  Sender: FDA-Public Use
  Company Number: CA-NOVOPROD-1150426

PATIENT
  Age: 51 Year
  Sex: Female
  Weight: 98.1 kg

DRUGS (5)
  1. OZEMPIC [Suspect]
     Active Substance: SEMAGLUTIDE
     Dosage: 1 MG, QW
     Route: 058
     Dates: start: 20230706
  2. OZEMPIC [Suspect]
     Active Substance: SEMAGLUTIDE
     Indication: Weight control
     Dosage: QW (DOSAGE AND UNITS NOT REPORTED)
     Route: 058
     Dates: start: 20230406
  3. HEMP [Concomitant]
     Active Substance: HEMP
     Indication: Diarrhoea
  4. HEMP [Concomitant]
     Active Substance: HEMP
     Indication: Diverticulum
  5. HEMP [Concomitant]
     Active Substance: HEMP
     Indication: Irritable bowel syndrome
     Dosage: UNK

REACTIONS (4)
  - Dyschezia [Not Recovered/Not Resolved]
  - Gastrointestinal pain [Not Recovered/Not Resolved]
  - Diarrhoea [Not Recovered/Not Resolved]
  - Product use in unapproved indication [Unknown]

NARRATIVE: CASE EVENT DATE: 20230406
